FAERS Safety Report 8780267 (Version 1)
Quarter: 2012Q4

REPORT INFORMATION
  Report Type: Spontaneous
  Country: US (occurrence: None)
  Receive Date: 20120905
  Receipt Date: 20120905
  Transmission Date: 20130627
  Serious: Yes (Other)
  Sender: FDA-Public Use
  Company Number: None

PATIENT
  Age: 62 Year
  Sex: Female
  Weight: 81.65 kg

DRUGS (1)
  1. PANTOPRAZOLE SODIUM [Suspect]
     Indication: HIATAL HERNIA

REACTIONS (9)
  - Chest pain [None]
  - Abdominal pain upper [None]
  - Hyperaesthesia [None]
  - Pain of skin [None]
  - Arthralgia [None]
  - Headache [None]
  - Memory impairment [None]
  - Choking [None]
  - Renal cyst [None]
